FAERS Safety Report 5308677-3 (Version None)
Quarter: 2007Q2

REPORT INFORMATION
  Report Type: 
  Country: None (occurrence: None)
  Receive Date: 20070426
  Receipt Date: 20070420
  Transmission Date: 20071010
  Serious: Yes (Hospitalization)
  Sender: FDA-Public Use
  Company Number: US-GLAXOSMITHKLINE-A0648153A

PATIENT
  Sex: Male

DRUGS (13)
  1. ADVAIR DISKUS 100/50 [Suspect]
     Indication: PNEUMOTHORAX
     Route: 055
     Dates: start: 20070201
  2. WARFARIN [Concomitant]
  3. FUROSEMIDE [Concomitant]
  4. VERAPAMIL [Concomitant]
  5. SPIRONOLACTONE [Concomitant]
  6. LISINOPRIL [Concomitant]
  7. PREDNISONE TAB [Concomitant]
  8. SPIRIVA [Concomitant]
  9. SINGULAIR [Concomitant]
  10. CLONIDINE [Concomitant]
  11. ANTIBIOTICS [Concomitant]
  12. ALBUTEROL [Concomitant]
  13. ANTIBIOTICS [Concomitant]

REACTIONS (8)
  - BLOOD PRESSURE INCREASED [None]
  - DIZZINESS [None]
  - DRUG INEFFECTIVE [None]
  - HEART RATE INCREASED [None]
  - HEART RATE IRREGULAR [None]
  - LOWER RESPIRATORY TRACT INFECTION [None]
  - LUNG INFECTION [None]
  - VISUAL DISTURBANCE [None]
